FAERS Safety Report 19199803 (Version 5)
Quarter: 2021Q2

REPORT INFORMATION
  Report Type: Spontaneous
  Country: ES (occurrence: ES)
  Receive Date: 20210430
  Receipt Date: 20210615
  Transmission Date: 20210717
  Serious: Yes (Hospitalization)
  Sender: FDA-Public Use
  Company Number: ES-CELGENEUS-ESP-20210400092

PATIENT
  Age: 62 Year
  Sex: Female

DRUGS (18)
  1. DEXAMETHASONE. [Suspect]
     Active Substance: DEXAMETHASONE
     Indication: PLASMA CELL MYELOMA
     Route: 065
     Dates: start: 20210329, end: 20210329
  2. ISATUXIMAB [Suspect]
     Active Substance: ISATUXIMAB
     Route: 065
     Dates: start: 20210429
  3. DEXCHLORPHENIRAMINE [Concomitant]
     Active Substance: DEXCHLORPHENIRAMINE
     Indication: TUBULOINTERSTITIAL NEPHRITIS
     Route: 065
     Dates: start: 20210506, end: 20210506
  4. LENALIDOMIDE [Suspect]
     Active Substance: LENALIDOMIDE
     Indication: PLASMA CELL MYELOMA
     Route: 048
     Dates: start: 20210329, end: 20210329
  5. ACICLOVIR [Concomitant]
     Active Substance: ACYCLOVIR
     Indication: PROPHYLAXIS
     Route: 065
     Dates: start: 20210329
  6. CEFIXIME. [Concomitant]
     Active Substance: CEFIXIME
     Indication: TUBULOINTERSTITIAL NEPHRITIS
     Route: 065
     Dates: start: 20210501, end: 20210505
  7. OMEPRAZOLE. [Concomitant]
     Active Substance: OMEPRAZOLE
     Indication: PROPHYLAXIS
     Route: 065
     Dates: start: 20210329
  8. ISATUXIMAB [Suspect]
     Active Substance: ISATUXIMAB
     Indication: PLASMA CELL MYELOMA
     Route: 065
     Dates: start: 20210329, end: 20210329
  9. CARFILZOMIB [Suspect]
     Active Substance: CARFILZOMIB
     Indication: PLASMA CELL MYELOMA
     Route: 065
     Dates: start: 20210329, end: 20210329
  10. CLEXANE [Concomitant]
     Active Substance: ENOXAPARIN SODIUM
     Indication: PROPHYLAXIS
     Route: 065
     Dates: start: 20210329
  11. CEFTRIAXONE. [Concomitant]
     Active Substance: CEFTRIAXONE
     Indication: TUBULOINTERSTITIAL NEPHRITIS
     Route: 065
     Dates: start: 20210430, end: 20210430
  12. DEXAMETHASONE. [Suspect]
     Active Substance: DEXAMETHASONE
     Route: 065
     Dates: start: 20210429
  13. PARACETAMOL [Concomitant]
     Active Substance: ACETAMINOPHEN
     Indication: TUBULOINTERSTITIAL NEPHRITIS
     Route: 065
     Dates: start: 20210430, end: 20210430
  14. SEPTRIN FORTE [Concomitant]
     Active Substance: SULFAMETHOXAZOLE\TRIMETHOPRIM
     Indication: PROPHYLAXIS
     Route: 065
     Dates: start: 20210329
  15. ACFOL [Concomitant]
     Active Substance: FOLIC ACID
     Indication: PROPHYLAXIS
     Route: 065
     Dates: start: 20210329
  16. HYDROXYZINE [Concomitant]
     Active Substance: HYDROXYZINE HYDROCHLORIDE
     Indication: TUBULOINTERSTITIAL NEPHRITIS
     Route: 065
     Dates: start: 20210506
  17. LENALIDOMIDE [Suspect]
     Active Substance: LENALIDOMIDE
     Route: 048
     Dates: start: 20210504
  18. CARFILZOMIB [Suspect]
     Active Substance: CARFILZOMIB
     Route: 065
     Dates: start: 20210429

REACTIONS (1)
  - Tubulointerstitial nephritis [Recovered/Resolved]

NARRATIVE: CASE EVENT DATE: 20210330
